FAERS Safety Report 4999477-2 (Version None)
Quarter: 2006Q2

REPORT INFORMATION
  Report Type: 
  Country: None (occurrence: None)
  Receive Date: 20060509
  Receipt Date: 20060509
  Transmission Date: 20061013
  Serious: Yes (Hospitalization)
  Sender: FDA-Public Use
  Company Number: None

PATIENT
  Age: 86 Year
  Sex: Female

DRUGS (6)
  1. BACTRIM DS [Suspect]
     Indication: URINARY TRACT INFECTION
     Dosage: 800/160 PO Q12H
     Route: 048
     Dates: start: 20051123, end: 20051203
  2. ATORVASTATIN [Concomitant]
  3. ESOMEPRAZOLE [Concomitant]
  4. CLOPIDOGREL [Concomitant]
  5. ALBUTEROL SULFATE AUTOHALER [Concomitant]
  6. ALPRAZOLAM [Concomitant]

REACTIONS (3)
  - DIZZINESS [None]
  - NAUSEA [None]
  - VOMITING [None]
